FAERS Safety Report 5461555-1 (Version None)
Quarter: 2007Q3

REPORT INFORMATION
  Report Type: 
  Country: None (occurrence: None)
  Receive Date: 20070920
  Receipt Date: 20061106
  Transmission Date: 20080115
  Serious: No
  Sender: FDA-Public Use
  Company Number: A0626112A

PATIENT
  Age: 30 Year
  Sex: Female

DRUGS (1)
  1. ABREVA [Suspect]
     Dosage: 1APP UNKNOWN
     Route: 061
     Dates: start: 20061024, end: 20061028

REACTIONS (2)
  - DRUG EXPOSURE DURING PREGNANCY [None]
  - ORAL HERPES [None]
